FAERS Safety Report 7812900-0 (Version None)
Quarter: 2011Q4

REPORT INFORMATION
  Report Type: 
  Country: None (occurrence: None)
  Receive Date: 20111013
  Receipt Date: 20111004
  Transmission Date: 20120403
  Serious: Yes (Hospitalization)
  Sender: FDA-Public Use
  Company Number: BR-ASTRAZENECA-2011SE59842

PATIENT
  Age: 82 Year
  Sex: Female
  Weight: 85 kg

DRUGS (6)
  1. ATACAND [Suspect]
     Route: 048
  2. CRESTOR [Suspect]
     Route: 048
  3. BRILLINTA [Suspect]
     Indication: MYOCARDIAL INFARCTION
     Route: 048
  4. METOPROLOL SUCCINATE [Suspect]
     Route: 048
  5. ASPIRIN [Concomitant]
     Route: 048
  6. INSULIN [Concomitant]
     Route: 048

REACTIONS (3)
  - MYOCARDIAL INFARCTION [None]
  - BRADYCARDIA [None]
  - DIZZINESS [None]
